FAERS Safety Report 6724566-1 (Version None)
Quarter: 2010Q2

REPORT INFORMATION
  Report Type: 
  Country: None (occurrence: None)
  Receive Date: 20100513
  Receipt Date: 20100502
  Transmission Date: 20101027
  Serious: Yes (Death, Life-Threatening, Hospitalization)
  Sender: FDA-Public Use
  Company Number: JP-PFIZER INC-2009185816

PATIENT
  Age: 82 Year
  Sex: Male
  Weight: 57.6 kg

DRUGS (9)
  1. SUNITINIB MALATE [Suspect]
     Indication: RENAL CELL CARCINOMA
     Dosage: 37.5 MG, 1X/DAY
     Route: 048
     Dates: start: 20081225, end: 20090403
  2. HYPEN [Concomitant]
     Dosage: UNK
     Route: 048
  3. OXYCONTIN [Concomitant]
     Dosage: UNK
     Route: 048
     Dates: start: 20081226
  4. OXYCODONE HCL [Concomitant]
     Dosage: UNK
     Route: 048
     Dates: start: 20081226
  5. PROCHLORPERAZINE [Concomitant]
     Dosage: UNK
     Route: 048
     Dates: start: 20081226
  6. MAGNESIUM OXIDE [Concomitant]
     Dosage: UNK
     Route: 048
     Dates: start: 20081226
  7. AMLODIN [Concomitant]
     Dosage: UNK
     Route: 048
     Dates: start: 20081228
  8. PURSENNID [Concomitant]
     Dosage: UNK
     Route: 048
     Dates: start: 20081229
  9. BIOFERMIN [Concomitant]
     Dosage: UNK
     Route: 048
     Dates: start: 20090103

REACTIONS (6)
  - ANAEMIA [None]
  - DISEASE PROGRESSION [None]
  - EJECTION FRACTION DECREASED [None]
  - RECTAL HAEMORRHAGE [None]
  - RECTAL ULCER [None]
  - RENAL CELL CARCINOMA [None]
